FAERS Safety Report 9973788 (Version 2)
Quarter: 2014Q1

REPORT INFORMATION
  Report Type: Spontaneous
  Country: US (occurrence: US)
  Receive Date: 20140306
  Receipt Date: 20140306
  Transmission Date: 20141002
  Serious: No
  Sender: FDA-Public Use
  Company Number: US-GILEAD-2012-0065191

PATIENT
  Age: 32 Year
  Sex: Male

DRUGS (2)
  1. VIREAD [Suspect]
     Indication: CHRONIC HEPATITIS B
     Dosage: 300 MG, QD
     Route: 048
     Dates: end: 201211
  2. PHOSPHORUS [Concomitant]
     Indication: PRODUCT USED FOR UNKNOWN INDICATION
     Dosage: UNK
     Dates: end: 201205

REACTIONS (2)
  - Hyperphosphaturia [Recovered/Resolved]
  - Alanine aminotransferase increased [Recovering/Resolving]
